FAERS Safety Report 21331320 (Version 2)
Quarter: 2022Q3

REPORT INFORMATION
  Report Type: Spontaneous
  Country: US (occurrence: US)
  Receive Date: 20220914
  Receipt Date: 20220921
  Transmission Date: 20221027
  Serious: No
  Sender: FDA-Public Use
  Company Number: US-GSKCCFUS-Case-01489937_AE-84955

PATIENT
  Age: 45 Year
  Sex: Female

DRUGS (1)
  1. VENTOLIN HFA [Suspect]
     Active Substance: ALBUTEROL SULFATE
     Indication: Product used for unknown indication
     Dosage: UNK

REACTIONS (6)
  - Oropharyngeal pain [Unknown]
  - Throat irritation [Unknown]
  - Secretion discharge [Unknown]
  - Hypersensitivity [Unknown]
  - Chest discomfort [Unknown]
  - Product quality issue [Unknown]
